FAERS Safety Report 16994003 (Version 1)
Quarter: 2019Q4

REPORT INFORMATION
  Report Type: Spontaneous
  Country: US (occurrence: US)
  Receive Date: 20190924
  Receipt Date: 20190924
  Transmission Date: 20200122
  Serious: No
  Sender: FDA-Public Use
  Company Number: None

PATIENT
  Age: 39 Year
  Sex: Male

DRUGS (1)
  1. PREZCOBIX [Suspect]
     Active Substance: COBICISTAT\DARUNAVIR ETHANOLATE
     Dosage: 800-150; DAILY; ORAL?
     Route: 048
     Dates: start: 201808, end: 201909

REACTIONS (2)
  - Bone disorder [None]
  - Cholecystectomy [None]

NARRATIVE: CASE EVENT DATE: 20190901
